FAERS Safety Report 7733966-2 (Version None)
Quarter: 2011Q3

REPORT INFORMATION
  Report Type: 
  Country: None (occurrence: None)
  Receive Date: 20110907
  Receipt Date: 20110829
  Transmission Date: 20111222
  Serious: Yes (Hospitalization)
  Sender: FDA-Public Use
  Company Number: US-JNJFOC-20110900583

PATIENT
  Sex: Female
  Weight: 58.3 kg

DRUGS (2)
  1. REMICADE [Suspect]
     Indication: CROHN'S DISEASE
     Route: 042
     Dates: start: 20060517, end: 20070711
  2. REMICADE [Suspect]
     Route: 042
     Dates: start: 20081016

REACTIONS (1)
  - CROHN'S DISEASE [None]
